FAERS Safety Report 8772759 (Version 3)
Quarter: 2013Q2

REPORT INFORMATION
  Report Type: Report from Study
  Country: JP (occurrence: JP)
  Receive Date: 20120907
  Receipt Date: 20130527
  Transmission Date: 20140414
  Serious: Yes (Hospitalization)
  Sender: FDA-Public Use
  Company Number: JP-009507513-1209JPN001264

PATIENT
  Age: 69 Year
  Sex: Female
  Weight: 44 kg

DRUGS (6)
  1. PEGINTRON [Suspect]
     Indication: CHRONIC HEPATITIS C
     Dosage: 1.4 MICROGRAM PER KILOGRAM, QW
     Route: 058
     Dates: start: 20120705, end: 20120803
  2. REBETOL [Suspect]
     Indication: CHRONIC HEPATITIS C
     Dosage: 400 MG, QD, CUMULATIVE DOSE:2000 MG
     Route: 048
     Dates: start: 20120705, end: 20120803
  3. TELAVIC [Suspect]
     Indication: CHRONIC HEPATITIS C
     Dosage: 1500 MG, QD, CUMULATIVE DOSE: 7500 MG
     Route: 048
     Dates: start: 20120705, end: 20120803
  4. SELBEX [Concomitant]
     Indication: PROPHYLAXIS
     Dosage: 150 MG, QD, FORMULATION:POR
     Route: 048
     Dates: start: 20120705, end: 20120815
  5. PARIET [Concomitant]
     Indication: PROPHYLAXIS
     Dosage: 10 MG, QD, FORMULATION: POR
     Route: 048
     Dates: start: 20120728, end: 20120809
  6. GASTER D [Concomitant]
     Indication: PROPHYLAXIS
     Dosage: 20 MG, QD, FORMULATION:POR
     Route: 048
     Dates: start: 20120810, end: 20120826

REACTIONS (1)
  - Erythema multiforme [Recovering/Resolving]
